FAERS Safety Report 15728972 (Version 2)
Quarter: 2019Q1

REPORT INFORMATION
  Report Type: Report from Study
  Country: US (occurrence: US)
  Receive Date: 20181217
  Receipt Date: 20190121
  Transmission Date: 20190417
  Serious: Yes (Other)
  Sender: FDA-Public Use
  Company Number: US-PFIZER INC-2018514760

PATIENT
  Age: 58 Year
  Sex: Female

DRUGS (1)
  1. XELJANZ [Suspect]
     Active Substance: TOFACITINIB CITRATE
     Indication: RHEUMATOID ARTHRITIS
     Dosage: 5 MG, 2X/DAY
     Route: 048
     Dates: start: 201809, end: 201810

REACTIONS (5)
  - Nasopharyngitis [Unknown]
  - Sinusitis [Unknown]
  - Clostridium difficile infection [Unknown]
  - Rheumatoid arthritis [Unknown]
  - Cough [Unknown]

NARRATIVE: CASE EVENT DATE: 2018
